FAERS Safety Report 11148539 (Version 1)
Quarter: 2015Q2

REPORT INFORMATION
  Report Type: Spontaneous
  Country: US (occurrence: US)
  Receive Date: 20150529
  Receipt Date: 20150529
  Transmission Date: 20150821
  Serious: No
  Sender: FDA-Public Use
  Company Number: US-PFIZER INC-2015176889

PATIENT
  Sex: Male

DRUGS (2)
  1. CODEINE [Suspect]
     Active Substance: CODEINE
  2. NITROGLYCERIN. [Suspect]
     Active Substance: NITROGLYCERIN

REACTIONS (1)
  - Drug hypersensitivity [Unknown]
